FAERS Safety Report 8621642-3 (Version None)
Quarter: 2012Q3

REPORT INFORMATION
  Report Type: 
  Country: None (occurrence: None)
  Receive Date: 20120820
  Receipt Date: 20120820
  Transmission Date: 20120928
  Serious: No
  Sender: FDA-Public Use
  Company Number: None

PATIENT
  Sex: Female
  Weight: 47.6277 kg

DRUGS (1)
  1. CAMRESE [Suspect]
     Indication: DYSMENORRHOEA
     Dosage: 1.5-,03-,01 QD PO
     Route: 048
     Dates: start: 20120603, end: 20120728

REACTIONS (3)
  - PRODUCT SUBSTITUTION ISSUE [None]
  - METRORRHAGIA [None]
  - MENORRHAGIA [None]
